FAERS Safety Report 7802402-X (Version None)
Quarter: 2011Q4

REPORT INFORMATION
  Report Type: 
  Country: None (occurrence: None)
  Receive Date: 20111007
  Receipt Date: 20110930
  Transmission Date: 20120403
  Serious: Yes (Hospitalization)
  Sender: FDA-Public Use
  Company Number: GB-UCBSA-041857

PATIENT
  Age: 4 Year
  Sex: Female
  Weight: 16 kg

DRUGS (3)
  1. CLOBAZAM [Concomitant]
     Indication: EPILEPSY
     Route: 048
     Dates: start: 20090801
  2. BENZODIAZEPINE [Concomitant]
  3. VIMPAT [Suspect]
     Indication: EPILEPSY
     Dosage: PATIENT WAS SWITCHED TO VIMPAT TABLETS FROM SYRUP
     Route: 048
     Dates: start: 20100801

REACTIONS (3)
  - CONVULSION [None]
  - DYSARTHRIA [None]
  - DIZZINESS [None]
